FAERS Safety Report 17614235 (Version 1)
Quarter: 2020Q2

REPORT INFORMATION
  Report Type: Spontaneous
  Country: DE (occurrence: DE)
  Receive Date: 20200402
  Receipt Date: 20200402
  Transmission Date: 20200713
  Serious: Yes (Hospitalization, Other)
  Sender: FDA-Public Use
  Company Number: DE-DRREDDYS-GER/GER/20/0121188

PATIENT
  Age: 6 Year
  Sex: Female

DRUGS (19)
  1. ZONISAMIDE. [Interacting]
     Active Substance: ZONISAMIDE
     Indication: PARTIAL SEIZURES
  2. CANNABIDIOL [Interacting]
     Active Substance: CANNABIDIOL
     Dosage: UNK
     Route: 065
     Dates: start: 20180928, end: 201903
  3. EVEROLIMUS. [Interacting]
     Active Substance: EVEROLIMUS
     Dosage: INITIATION DAILY DOSE OF 0.15 MG/KG/DAY TO MAXIMUM DOSE OF 0.6MG/KG/DAY, REDUCED TO 0.3MG/KG/DAY
     Route: 065
     Dates: start: 201712
  4. EVEROLIMUS. [Interacting]
     Active Substance: EVEROLIMUS
     Indication: EPILEPSY
     Dosage: 0.13 MG/KG, QD
     Route: 065
  5. EVEROLIMUS. [Interacting]
     Active Substance: EVEROLIMUS
     Dosage: 0.6 MG/KG, QD
     Route: 065
     Dates: start: 2018
  6. CANNABIDIOL [Interacting]
     Active Substance: CANNABIDIOL
     Indication: EPILEPSY
     Dosage: 500 MG, QD (20.4 MG/KG/DAY)
     Route: 065
  7. EVEROLIMUS. [Interacting]
     Active Substance: EVEROLIMUS
     Dosage: 0.3 MG/KG, QD
     Route: 065
     Dates: start: 2018
  8. TOPIRAMATE. [Interacting]
     Active Substance: TOPIRAMATE
     Indication: PARTIAL SEIZURES
  9. SULTHIAME [Interacting]
     Active Substance: SULTHIAME
     Indication: PARTIAL SEIZURES
  10. CARBAMAZEPINE. [Interacting]
     Active Substance: CARBAMAZEPINE
     Indication: PARTIAL SEIZURES
  11. LAMOTRIGINE. [Suspect]
     Active Substance: LAMOTRIGINE
     Indication: TUBEROUS SCLEROSIS COMPLEX
     Dosage: UNK
     Route: 065
  12. OXCARBAZEPINE. [Interacting]
     Active Substance: OXCARBAZEPINE
     Indication: PARTIAL SEIZURES
  13. CANNABIDIOL [Interacting]
     Active Substance: CANNABIDIOL
     Indication: TUBEROUS SCLEROSIS COMPLEX
     Dosage: 200 MG, QD (9.3 MG/KG/DAY)
     Route: 065
  14. PROPRANOLOL [Concomitant]
     Active Substance: PROPRANOLOL HYDROCHLORIDE
     Indication: TUBEROUS SCLEROSIS COMPLEX
     Dosage: UNK
     Route: 065
  15. EVEROLIMUS. [Interacting]
     Active Substance: EVEROLIMUS
     Dosage: 5 MG, QD
     Route: 048
     Dates: start: 20190928
  16. CLOBAZAM. [Interacting]
     Active Substance: CLOBAZAM
     Indication: TUBEROUS SCLEROSIS COMPLEX
     Dosage: 2.5 MG, BID
     Route: 065
     Dates: start: 2018
  17. VIGABATRIN. [Interacting]
     Active Substance: VIGABATRIN
     Indication: PARTIAL SEIZURES
  18. VALPROIC ACID. [Interacting]
     Active Substance: VALPROIC ACID
     Indication: PARTIAL SEIZURES
  19. LACOSAMIDE. [Interacting]
     Active Substance: LACOSAMIDE
     Indication: TUBEROUS SCLEROSIS COMPLEX
     Dosage: UNK
     Route: 065

REACTIONS (10)
  - Drug interaction [Unknown]
  - Drug level increased [Not Recovered/Not Resolved]
  - Epilepsy [Unknown]
  - Tonic convulsion [Unknown]
  - Therapeutic product effective for unapproved indication [Recovered/Resolved]
  - Drug ineffective [Unknown]
  - Off label use [Not Recovered/Not Resolved]
  - Therapeutic product ineffective for unapproved indication [Not Recovered/Not Resolved]
  - Drug interaction [Recovered/Resolved]
  - Drug level increased [Recovered/Resolved]

NARRATIVE: CASE EVENT DATE: 20181027
